FAERS Safety Report 14938936 (Version 2)
Quarter: 2018Q2

REPORT INFORMATION
  Report Type: Report from Study
  Country: JP (occurrence: JP)
  Receive Date: 20180525
  Receipt Date: 20180529
  Transmission Date: 20180711
  Serious: Yes (Death, Hospitalization)
  Sender: FDA-Public Use
  Company Number: JP-JNJFOC-20180532486

PATIENT
  Age: 47 Year
  Sex: Female
  Weight: 84 kg

DRUGS (48)
  1. MIYA-BM [Concomitant]
     Active Substance: CLOSTRIDIUM BUTYRICUM SPORES STRAIN M-55
     Indication: COLITIS ULCERATIVE
     Route: 048
  2. CEFMETAZOLE NA [Concomitant]
     Active Substance: CEFMETAZOLE
     Route: 065
  3. FUNGUARD [Concomitant]
     Active Substance: MICAFUNGIN SODIUM
     Route: 065
  4. PANTHENOL [Concomitant]
     Active Substance: PANTHENOL
     Route: 065
  5. SOLDACTONE [Concomitant]
     Active Substance: CANRENOATE POTASSIUM
     Route: 042
  6. REBAMIPIDE [Concomitant]
     Active Substance: REBAMIPIDE
     Route: 048
  7. MEDICON [Concomitant]
     Active Substance: DEXTROMETHORPHAN HYDROBROMIDE
     Route: 048
  8. LASIX [Concomitant]
     Active Substance: FUROSEMIDE
     Route: 065
  9. FILGRASTIM BS [Concomitant]
     Active Substance: FILGRASTIM
     Route: 065
  10. FERRIC OXIDE, SACCHARATED [Concomitant]
     Route: 065
  11. CLOSTRIDIUM BUTYRICUM [Concomitant]
     Active Substance: CLOSTRIDIUM BUTYRICUM SPORES STRAIN M-55
     Route: 048
  12. VEEN D [Concomitant]
     Active Substance: CALCIUM CHLORIDE\DEXTROSE\POTASSIUM CHLORIDE\SODIUM ACETATE\SODIUM CHLORIDE
     Route: 065
  13. SIMPONI [Suspect]
     Active Substance: GOLIMUMAB
     Indication: COLITIS ULCERATIVE
     Route: 058
     Dates: start: 20180227, end: 20180227
  14. LOXOPROFEN [Concomitant]
     Active Substance: LOXOPROFEN
     Route: 048
  15. REMINARON [Concomitant]
     Active Substance: GABEXATE MESYLATE
     Route: 065
  16. PRIMPERAN [Concomitant]
     Active Substance: METOCLOPRAMIDE HYDROCHLORIDE
     Route: 065
  17. KAYTWO [Concomitant]
     Active Substance: MENATETRENONE
     Route: 042
  18. ISOTONIC SODIUM CHLORIDE SOLUTION [Concomitant]
     Active Substance: SODIUM CHLORIDE
     Route: 065
  19. SIMPONI [Suspect]
     Active Substance: GOLIMUMAB
     Indication: COLITIS ULCERATIVE
     Route: 058
     Dates: start: 20180213, end: 20180213
  20. AZANIN [Concomitant]
     Active Substance: AZATHIOPRINE
     Indication: COLITIS ULCERATIVE
     Route: 048
  21. CLOSTRIDIUM BUTYRICUM [Concomitant]
     Active Substance: CLOSTRIDIUM BUTYRICUM SPORES STRAIN M-55
     Indication: COLITIS ULCERATIVE
     Route: 048
  22. MEROPENEM. [Concomitant]
     Active Substance: MEROPENEM
     Route: 065
  23. SOSEGON [Concomitant]
     Active Substance: PENTAZOCINE
     Route: 065
  24. PETHIDINE HYDROCHLORIDE [Concomitant]
     Active Substance: MEPERIDINE HYDROCHLORIDE
     Route: 065
  25. FAMOTIDINE. [Concomitant]
     Active Substance: FAMOTIDINE
     Route: 065
  26. THIAMINE DISULFIDE PHOSPHATE [Concomitant]
     Route: 042
  27. GLUCOSE [Concomitant]
     Active Substance: DEXTROSE
     Route: 065
  28. LIALDA [Concomitant]
     Active Substance: MESALAMINE
     Indication: COLITIS ULCERATIVE
     Route: 048
     Dates: start: 20180322
  29. FERROUS CITRATE NA [Concomitant]
     Active Substance: SODIUM FERROUS CITRATE
     Route: 048
  30. MEYLON [Concomitant]
     Active Substance: SODIUM BICARBONATE
     Route: 042
  31. NICARDIPINE HYDROCHLORIDE. [Concomitant]
     Active Substance: NICARDIPINE HYDROCHLORIDE
     Route: 065
  32. SOLYUGEN [Concomitant]
     Route: 065
  33. SALAZOSULFAPYRIDINE [Concomitant]
     Active Substance: SULFASALAZINE
     Indication: COLITIS ULCERATIVE
     Route: 048
     Dates: start: 20180321
  34. TAZOPIPE [Concomitant]
     Active Substance: PIPERACILLIN SODIUM\TAZOBACTAM SODIUM
     Route: 065
  35. FINIBAX [Concomitant]
     Active Substance: DORIPENEM MONOHYDRATE
     Route: 041
  36. TERBINAFINE HYDROCHLORIDE. [Concomitant]
     Active Substance: TERBINAFINE HYDROCHLORIDE
     Route: 061
  37. OLIVE OIL [Concomitant]
     Active Substance: OLIVE OIL
     Route: 065
  38. HYDROXYZINE HYDROCHLORIDE. [Concomitant]
     Active Substance: HYDROXYZINE HYDROCHLORIDE
     Route: 061
  39. ACETAMINOPHEN. [Concomitant]
     Active Substance: ACETAMINOPHEN
     Route: 042
  40. POTASSIUM ASPARTATE [Concomitant]
     Active Substance: POTASSIUM ASPARTATE
     Route: 042
  41. URSODEOXYCHOLIC ACID [Concomitant]
     Active Substance: URSODIOL
     Route: 048
  42. CINAL [Concomitant]
     Active Substance: ASCORBIC ACID\CALCIUM PANTOTHENATE
     Route: 048
  43. SOSEGON [Concomitant]
     Active Substance: PENTAZOCINE
     Route: 065
  44. RECOMODULIN [Concomitant]
     Active Substance: THROMBOMODULIN ALFA
     Route: 065
  45. URSO [Concomitant]
     Active Substance: URSODIOL
     Route: 048
  46. CRAVIT [Concomitant]
     Active Substance: LEVOFLOXACIN
     Route: 065
  47. OMEPRAZOLE SODIUM [Concomitant]
     Active Substance: OMEPRAZOLE SODIUM
     Route: 065
  48. ZINC OXIDE. [Concomitant]
     Active Substance: ZINC OXIDE
     Route: 061

REACTIONS (3)
  - Abdominal pain [Not Recovered/Not Resolved]
  - Pyrexia [Not Recovered/Not Resolved]
  - Sepsis [Fatal]

NARRATIVE: CASE EVENT DATE: 20180309
